FAERS Safety Report 5640577-1 (Version None)
Quarter: 2008Q1

REPORT INFORMATION
  Report Type: 
  Country: None (occurrence: None)
  Receive Date: 20080227
  Receipt Date: 20080219
  Transmission Date: 20080703
  Serious: Yes (Life-Threatening, Hospitalization, Other)
  Sender: FDA-Public Use
  Company Number: PHEH2008US02072

PATIENT
  Age: 32 Year
  Sex: Female

DRUGS (5)
  1. DILANTIN [Suspect]
     Dates: start: 19760101
  2. TEGRETOL [Suspect]
     Indication: CONVULSION
  3. PHENYTOIN [Suspect]
  4. DILANTIN [Suspect]
     Indication: CONVULSION
  5. VITAMINS [Concomitant]

REACTIONS (15)
  - ABNORMAL BEHAVIOUR [None]
  - ANOREXIA [None]
  - ANTICONVULSANT DRUG LEVEL DECREASED [None]
  - ANTICONVULSANT DRUG LEVEL INCREASED [None]
  - BRAIN OPERATION [None]
  - CONVULSION [None]
  - DRUG EFFECT DECREASED [None]
  - DRUG WITHDRAWAL SYNDROME [None]
  - FATIGUE [None]
  - FEELING ABNORMAL [None]
  - OVERDOSE [None]
  - STOMACH DISCOMFORT [None]
  - SURGERY [None]
  - THERAPEUTIC AGENT TOXICITY [None]
  - WEIGHT DECREASED [None]
